FAERS Safety Report 8258802-X (Version None)
Quarter: 2012Q2

REPORT INFORMATION
  Report Type: 
  Country: None (occurrence: None)
  Receive Date: 20120404
  Receipt Date: 20120327
  Transmission Date: 20120825
  Serious: Yes (Other)
  Sender: FDA-Public Use
  Company Number: DE-B.I. PHARMACEUTICALS,INC./RIDGEFIELD-2012-DE-00883DE

PATIENT

DRUGS (1)
  1. PRADAXA [Suspect]

REACTIONS (2)
  - COAGULOPATHY [None]
  - RENAL IMPAIRMENT [None]
